FAERS Safety Report 4720301-7 (Version None)
Quarter: 2005Q3

REPORT INFORMATION
  Report Type: 
  Country: None (occurrence: None)
  Receive Date: 20050719
  Receipt Date: 20050628
  Transmission Date: 20060218
  Serious: Yes (Death)
  Sender: FDA-Public Use
  Company Number: B0386867A

PATIENT
  Age: 36 Year
  Sex: Female

DRUGS (1)
  1. EPIVIR [Suspect]
     Indication: ANTIVIRAL PROPHYLAXIS

REACTIONS (5)
  - HEPATIC FAILURE [None]
  - HEPATIC NECROSIS [None]
  - HEPATITIS B [None]
  - HEPATITIS D [None]
  - HEPATITIS FULMINANT [None]
